FAERS Safety Report 8954583 (Version 2)
Quarter: 2012Q4

REPORT INFORMATION
  Report Type: 
  Country: JP (occurrence: JP)
  Receive Date: 20121209
  Receipt Date: 20121211
  Transmission Date: 20130627
  Serious: Yes (Hospitalization, Other)
  Sender: FDA-Public Use
  Company Number: PHHY2012JP112340

PATIENT
  Age: 72 Year
  Sex: Male

DRUGS (12)
  1. STARSIS [Suspect]
     Indication: DIABETES MELLITUS
     Dosage: 90 mg, TID
     Route: 048
     Dates: start: 20080111
  2. MICOMBI COMBINATION [Suspect]
     Indication: HYPERTENSION
     Dosage: 1 DF, UNK
     Route: 048
     Dates: start: 20120806, end: 20121015
  3. ACTOS [Suspect]
     Indication: DIABETES MELLITUS
     Dosage: 30 mg, UNK
     Route: 048
     Dates: start: 20080419, end: 20121030
  4. GASTER [Suspect]
     Indication: GASTRIC ULCER
     Dosage: 40 mg, UNK
     Route: 048
     Dates: start: 20091102, end: 20121030
  5. BASEN [Concomitant]
     Indication: DIABETES MELLITUS
     Dosage: 0.9 mg, UNK
     Dates: start: 20070908
  6. CRESTOR [Concomitant]
     Dosage: 2.5 mg, UNK
     Dates: start: 20070908
  7. WARFARIN [Concomitant]
     Indication: ATRIAL FIBRILLATION
     Dosage: 4 mg, UNK
     Dates: start: 20070915
  8. NORVASC [Concomitant]
     Indication: HYPERTENSION
     Dosage: 5 mg, UNK
     Dates: start: 20120806
  9. MICARDIS [Concomitant]
     Indication: HYPERTENSION
     Dosage: 40 mg, UNK
     Dates: start: 20080111, end: 20080404
  10. MICARDIS [Concomitant]
     Dosage: 20 mg, UNK
     Dates: start: 20080404, end: 20100927
  11. MICARDIS [Concomitant]
     Dosage: 40 mg, UNK
     Dates: start: 20100927, end: 20120521
  12. MICAMLO [Concomitant]
     Dosage: 1 DF, UNK
     Dates: start: 20120521, end: 20120806

REACTIONS (4)
  - Interstitial lung disease [Recovering/Resolving]
  - Chest X-ray abnormal [Recovering/Resolving]
  - Pyrexia [Recovering/Resolving]
  - Pneumonia [Recovered/Resolved]
